FAERS Safety Report 16895228 (Version 1)
Quarter: 2019Q4

REPORT INFORMATION
  Report Type: Spontaneous
  Country: US (occurrence: US)
  Receive Date: 20191008
  Receipt Date: 20191008
  Transmission Date: 20200122
  Serious: No
  Sender: FDA-Public Use
  Company Number: US-INDIVIOR US-INDV-114076-2018

PATIENT
  Sex: Male

DRUGS (1)
  1. BUPRENORPHINE 2 MG TABLET [Suspect]
     Active Substance: BUPRENORPHINE HYDROCHLORIDE
     Indication: RESTLESS LEGS SYNDROME
     Dosage: UNK, CUTTING INTO 1/4 AND 1/8 PIECES
     Route: 060

REACTIONS (2)
  - Off label use [Not Recovered/Not Resolved]
  - Wrong technique in product usage process [Not Recovered/Not Resolved]
